FAERS Safety Report 8353925-9 (Version None)
Quarter: 2012Q2

REPORT INFORMATION
  Report Type: 
  Country: None (occurrence: None)
  Receive Date: 20120511
  Receipt Date: 20120507
  Transmission Date: 20120825
  Serious: Yes (Hospitalization, Other)
  Sender: FDA-Public Use
  Company Number: JP-BAYER-200911169BYL

PATIENT
  Age: 78 Year
  Sex: Male
  Weight: 50 kg

DRUGS (8)
  1. NEXAVAR [Suspect]
     Indication: RENAL CELL CARCINOMA STAGE IV
     Dosage: 800 MG (DAILY DOSE)
     Route: 048
     Dates: start: 20090119, end: 20090129
  2. MUCODYNE [Concomitant]
     Dosage: 2 DF (DAILY DOSE), , ORAL
     Route: 048
     Dates: start: 20091102, end: 20100202
  3. NEXAVAR [Suspect]
     Indication: METASTASES TO LUNG
     Dosage: 400 MG (DAILY DOSE)
     Route: 048
     Dates: start: 20090130, end: 20090224
  4. NEXAVAR [Suspect]
     Dosage: 200 MG (DAILY DOSE)
     Route: 048
     Dates: start: 20091102, end: 20100202
  5. MUCODYNE [Concomitant]
     Indication: HEPATIC FUNCTION ABNORMAL
     Dosage: 2 DF (DAILY DOSE), , ORAL
     Route: 048
     Dates: start: 20090415, end: 20090602
  6. MUCODYNE [Concomitant]
     Dosage: 2 DF (DAILY DOSE), , ORAL
     Route: 048
     Dates: start: 20090602, end: 20091102
  7. OIF [Concomitant]
     Dosage: 500 MIU, TIW
     Route: 058
     Dates: start: 20090425, end: 20091027
  8. NEXAVAR [Suspect]
     Dosage: 400 MG (DAILY DOSE)
     Route: 048
     Dates: end: 20090414

REACTIONS (6)
  - MOUTH HAEMORRHAGE [None]
  - PALMAR-PLANTAR ERYTHRODYSAESTHESIA SYNDROME [None]
  - LIVER FUNCTION TEST ABNORMAL [None]
  - HYPERTENSION [None]
  - AMYLASE INCREASED [None]
  - HEPATIC FUNCTION ABNORMAL [None]
